FAERS Safety Report 4386586-4 (Version None)
Quarter: 2004Q2

REPORT INFORMATION
  Report Type: 
  Country: None (occurrence: None)
  Receive Date: 20040629
  Receipt Date: 20010105
  Transmission Date: 20050107
  Serious: Yes (Hospitalization)
  Sender: FDA-Public Use
  Company Number: US-GLAXOSMITHKLINE-A0136569A

PATIENT
  Age: 68 Year
  Sex: Female

DRUGS (8)
  1. LOTRONEX [Suspect]
     Indication: IRRITABLE BOWEL SYNDROME
     Dosage: 1MG TWICE PER DAY
     Route: 048
     Dates: start: 20000425, end: 20000605
  2. INDERAL [Concomitant]
  3. PROCARDIA [Concomitant]
  4. LIPITOR [Concomitant]
  5. VITAMIN B-12 [Concomitant]
  6. TRANXENE [Concomitant]
  7. LEVSIN PB [Concomitant]
  8. CODEINE [Concomitant]

REACTIONS (4)
  - ABDOMINAL PAIN [None]
  - LOOSE STOOLS [None]
  - NAUSEA [None]
  - SMALL INTESTINAL OBSTRUCTION [None]
